FAERS Safety Report 6697748-5 (Version None)
Quarter: 2010Q2

REPORT INFORMATION
  Report Type: 
  Country: None (occurrence: None)
  Receive Date: 20100423
  Receipt Date: 20100409
  Transmission Date: 20101027
  Serious: Yes (Other)
  Sender: FDA-Public Use
  Company Number: 010330

PATIENT
  Sex: Female

DRUGS (5)
  1. XYREM [Suspect]
     Dosage: (ORAL)
     Route: 048
     Dates: start: 20090101
  2. LORTAB [Suspect]
  3. XANAX [Suspect]
  4. OXYCONTIN [Suspect]
  5. MARIJUANA [Suspect]

REACTIONS (9)
  - ABNORMAL BEHAVIOUR [None]
  - AGGRESSION [None]
  - DRUG DIVERSION [None]
  - MENTAL DISORDER [None]
  - MYDRIASIS [None]
  - OVERDOSE [None]
  - SELF-MEDICATION [None]
  - SOMNOLENCE [None]
  - WRONG TECHNIQUE IN DRUG USAGE PROCESS [None]
